FAERS Safety Report 10086682 (Version 4)
Quarter: 2014Q2

REPORT INFORMATION
  Report Type: Report from Study
  Country: US (occurrence: US)
  Receive Date: 20140418
  Receipt Date: 20140624
  Transmission Date: 20141212
  Serious: Yes (Hospitalization, Other)
  Sender: FDA-Public Use
  Company Number: US-ACTELION-A-NJ2013-89871

PATIENT
  Age: 55 Year
  Sex: Female

DRUGS (2)
  1. VENTAVIS [Suspect]
     Indication: PULMONARY ARTERIAL HYPERTENSION
     Dosage: 5 MCG, 6-9 X DAILY
     Route: 055
     Dates: start: 20130711
  2. ADCIRCA [Concomitant]

REACTIONS (3)
  - Lung disorder [Unknown]
  - Cardiac failure congestive [Unknown]
  - Dyspnoea [Unknown]
